FAERS Safety Report 22382353 (Version 1)
Quarter: 2023Q2

REPORT INFORMATION
  Report Type: Spontaneous
  Country: US (occurrence: None)
  Receive Date: 20230526
  Receipt Date: 20230526
  Transmission Date: 20230722
  Serious: No
  Sender: FDA-Public Use
  Company Number: None

PATIENT
  Sex: Male

DRUGS (10)
  1. ABIRATERONE ACETATE [Suspect]
     Active Substance: ABIRATERONE ACETATE
     Indication: Prostate cancer
     Dosage: OTHER QUANTITY : 4T;?FREQUENCY : DAILY;?
     Route: 048
  2. ACETAMINOPHEN [Concomitant]
  3. CARVEDILOL [Concomitant]
  4. HYDROCHLOROTHIAZIDE [Concomitant]
     Active Substance: HYDROCHLOROTHIAZIDE
  5. LISINOPRIL [Concomitant]
  6. PEPCID [Concomitant]
     Active Substance: FAMOTIDINE
  7. POMEGRANATE [Concomitant]
     Active Substance: POMEGRANATE
  8. PREDNISONE [Concomitant]
     Active Substance: PREDNISONE
  9. SIMVASTATIN [Concomitant]
  10. ZOFRAN [Concomitant]
     Active Substance: ONDANSETRON HYDROCHLORIDE

REACTIONS (2)
  - Disease progression [None]
  - Therapy cessation [None]
